FAERS Safety Report 5730633-1 (Version None)
Quarter: 2008Q2

REPORT INFORMATION
  Report Type: 
  Country: None (occurrence: None)
  Receive Date: 20080505
  Receipt Date: 20080505
  Transmission Date: 20081010
  Serious: Yes (Other)
  Sender: FDA-Public Use
  Company Number: None

PATIENT
  Sex: Male
  Weight: 79.3795 kg

DRUGS (1)
  1. CHANTIX [Suspect]

REACTIONS (5)
  - AFFECTIVE DISORDER [None]
  - DEPRESSION [None]
  - IRRITABILITY [None]
  - NO REACTION ON PREVIOUS EXPOSURE TO DRUG [None]
  - THINKING ABNORMAL [None]
